FAERS Safety Report 4459148-8 (Version None)
Quarter: 2004Q3

REPORT INFORMATION
  Report Type: 
  Country: None (occurrence: None)
  Receive Date: 20040927
  Receipt Date: 20040914
  Transmission Date: 20050211
  Serious: Yes (Hospitalization)
  Sender: FDA-Public Use
  Company Number: PHHO2004US12959

PATIENT
  Age: 60 Year
  Sex: Male
  Weight: 87 kg

DRUGS (13)
  1. FTY720 VS MYCOPHENOLATE MOFETIL [Suspect]
     Indication: RENAL TRANSPLANT
     Dosage: CODE NOT BROKEN
     Route: 048
     Dates: start: 20040602
  2. NEORAL [Suspect]
     Indication: RENAL TRANSPLANT
     Dosage: 100 MG, BID
     Route: 048
     Dates: start: 20040904, end: 20040910
  3. NEORAL [Suspect]
     Dosage: 75 MG, BID
     Route: 048
     Dates: start: 20040911
  4. PREDNISONE [Concomitant]
     Indication: RENAL TRANSPLANT
     Dosage: 10 MG, QD
     Route: 048
     Dates: start: 20040811
  5. BACTRIM [Suspect]
     Indication: INFECTION PROPHYLAXIS
     Dosage: 1 TABLET
     Route: 048
     Dates: start: 20040603
  6. VALCYTE [Concomitant]
  7. PROTONIX [Concomitant]
  8. IMDUR [Concomitant]
  9. LOPRESSOR [Concomitant]
  10. SYNTHROID [Concomitant]
  11. ASPIRIN [Concomitant]
  12. HUMULIN N [Concomitant]
  13. DIALYSIS [Concomitant]

REACTIONS (11)
  - ACUTE PRERENAL FAILURE [None]
  - ADRENAL INSUFFICIENCY [None]
  - BLOOD CREATININE INCREASED [None]
  - CONFUSIONAL STATE [None]
  - DIALYSIS DISEQUILIBRIUM SYNDROME [None]
  - ELECTROLYTE IMBALANCE [None]
  - HYPERKALAEMIA [None]
  - HYPERPHOSPHATAEMIA [None]
  - KIDNEY TRANSPLANT REJECTION [None]
  - MYALGIA [None]
  - SEPSIS [None]
